FAERS Safety Report 12228876 (Version 2)
Quarter: 2016Q2

REPORT INFORMATION
  Report Type: Report from Study
  Country: CO (occurrence: CO)
  Receive Date: 20160401
  Receipt Date: 20160516
  Transmission Date: 20160815
  Serious: Yes (Hospitalization)
  Sender: FDA-Public Use
  Company Number: PHHY2016CO042818

PATIENT
  Age: 9 Year
  Sex: Female
  Weight: 41 kg

DRUGS (14)
  1. MEROPENEM. [Concomitant]
     Active Substance: MEROPENEM
     Indication: PRODUCT USED FOR UNKNOWN INDICATION
     Route: 065
  2. OMEPRAZOLE. [Concomitant]
     Active Substance: OMEPRAZOLE
     Indication: PRODUCT USED FOR UNKNOWN INDICATION
     Dosage: 20 MG, IN THE MORNING
     Route: 065
  3. CYCLOSPORINE. [Concomitant]
     Active Substance: CYCLOSPORINE
     Indication: PRODUCT USED FOR UNKNOWN INDICATION
     Dosage: 100 MG/ML, QD (0.7 ML OF SUSPENSION IN THE MORNING (DAILY))
     Route: 048
  4. DIPYRONE [Concomitant]
     Active Substance: DIPYRONE
     Indication: PRODUCT USED FOR UNKNOWN INDICATION
     Route: 065
  5. VORICONAZOLE. [Concomitant]
     Active Substance: VORICONAZOLE
     Indication: PRODUCT USED FOR UNKNOWN INDICATION
     Dosage: 200 MG, IN THE MORNING
     Route: 065
  6. ACYCLOVIR. [Concomitant]
     Active Substance: ACYCLOVIR
     Dosage: 200 MG, IN THE AFTERNOON
     Route: 065
  7. DEFERASIROX [Concomitant]
     Active Substance: DEFERASIROX
     Indication: PRODUCT USED FOR UNKNOWN INDICATION
     Dosage: 200 MG, IN THE AFTERNOON
     Route: 065
  8. EXJADE [Suspect]
     Active Substance: DEFERASIROX
     Indication: APLASTIC ANAEMIA
     Dosage: 500 MG (10 MG/KG), QD
     Route: 048
     Dates: start: 20160202
  9. VANCOMYCIN [Concomitant]
     Active Substance: VANCOMYCIN
     Indication: PRODUCT USED FOR UNKNOWN INDICATION
     Route: 065
  10. CYCLOSPORINE. [Concomitant]
     Active Substance: CYCLOSPORINE
     Dosage: 100 MG/ML, QD (0.7 ML OF SUSPENSION IN THE AFTERNOON (DAILY))
     Route: 048
  11. FOLIC ACID. [Concomitant]
     Active Substance: FOLIC ACID
     Indication: PRODUCT USED FOR UNKNOWN INDICATION
     Dosage: 1 MG, IN THE MORNING
     Route: 065
  12. ACYCLOVIR. [Concomitant]
     Active Substance: ACYCLOVIR
     Indication: PRODUCT USED FOR UNKNOWN INDICATION
     Dosage: 200 MG, IN THE MORNING
     Route: 065
  13. ACYCLOVIR. [Concomitant]
     Active Substance: ACYCLOVIR
     Dosage: 200 MG, IN THE NIGHT
     Route: 065
  14. VORICONAZOLE. [Concomitant]
     Active Substance: VORICONAZOLE
     Dosage: 200 MG, IN THE NIGHT
     Route: 065

REACTIONS (18)
  - Bacteraemia [Unknown]
  - Pneumonia streptococcal [Recovered/Resolved]
  - Thrombophlebitis [Recovering/Resolving]
  - Febrile neutropenia [Not Recovered/Not Resolved]
  - Neck mass [Unknown]
  - Secondary hypertension [Recovering/Resolving]
  - Hepatotoxicity [Recovering/Resolving]
  - Transplant failure [Unknown]
  - Pneumonia klebsiella [Recovered/Resolved]
  - Hypophosphataemia [Unknown]
  - Mucosal inflammation [Recovered/Resolved]
  - Pyrexia [Not Recovered/Not Resolved]
  - Myositis [Unknown]
  - Hypomagnesaemia [Unknown]
  - Hepatic vein occlusion [Recovered/Resolved]
  - Folate deficiency [Recovered/Resolved]
  - Inflammation [Unknown]
  - Lemierre syndrome [Recovering/Resolving]

NARRATIVE: CASE EVENT DATE: 20160301
